FAERS Safety Report 10768877 (Version 3)
Quarter: 2016Q3

REPORT INFORMATION
  Report Type: Spontaneous
  Country: JP (occurrence: JP)
  Receive Date: 20150206
  Receipt Date: 20160728
  Transmission Date: 20161109
  Serious: Yes (Death, Hospitalization)
  Sender: FDA-Public Use
  Company Number: JP-JNJFOC-20150200377

PATIENT
  Age: 65 Year
  Sex: Female
  Weight: 66 kg

DRUGS (9)
  1. MICAMLO [Concomitant]
     Active Substance: AMLODIPINE BESYLATE\TELMISARTAN
     Route: 048
     Dates: start: 20110714, end: 20141229
  2. TENORMIN [Concomitant]
     Active Substance: ATENOLOL
     Route: 048
     Dates: start: 20110714, end: 20141229
  3. SUGLAT [Concomitant]
     Active Substance: IPRAGLIFLOZIN L-PROLINE
     Indication: TYPE 2 DIABETES MELLITUS
     Route: 048
     Dates: start: 20140523, end: 20140919
  4. LANTUS [Concomitant]
     Active Substance: INSULIN GLARGINE
     Indication: TYPE 2 DIABETES MELLITUS
     Dosage: DOSE 0-0-0-20  (UNITS UNSPECIFIED); STARTED 3 MONTHS OR MORE BEFORE ADMINISTRATION OF CANAGLIFLOZIN
     Route: 058
     Dates: end: 20140920
  5. NOVORAPID [Concomitant]
     Active Substance: INSULIN ASPART
     Indication: TYPE 2 DIABETES MELLITUS
     Dosage: DOSE 16-12-16 (UNITS UNSPECIFIED); STARTED 3 MONTHS OR MORE BEFORE ADMINISTRATION OF CANAGLIFLOZIN
     Route: 058
     Dates: start: 20141229
  6. ALLELOCK [Concomitant]
     Active Substance: OLOPATADINE HYDROCHLORIDE
     Dosage: FOR 11 YEARS
     Route: 048
     Dates: start: 20031226
  7. ITOROL [Concomitant]
     Active Substance: ISOSORBIDE MONONITRATE
     Indication: DIABETES MELLITUS
     Route: 048
     Dates: start: 20100410, end: 20141229
  8. CANAGLU [Suspect]
     Active Substance: CANAGLIFLOZIN
     Indication: TYPE 2 DIABETES MELLITUS
     Route: 048
     Dates: start: 20140910, end: 20141229
  9. METGLUCO [Concomitant]
     Active Substance: METFORMIN HYDROCHLORIDE
     Indication: TYPE 2 DIABETES MELLITUS
     Route: 048
     Dates: start: 20140222

REACTIONS (2)
  - Myocardial infarction [Fatal]
  - Peripheral artery stenosis [Not Recovered/Not Resolved]

NARRATIVE: CASE EVENT DATE: 20141001
